FAERS Safety Report 24356570 (Version 1)
Quarter: 2024Q3

REPORT INFORMATION
  Report Type: Spontaneous
  Country: US (occurrence: US)
  Receive Date: 20240924
  Receipt Date: 20240924
  Transmission Date: 20241016
  Serious: No
  Sender: VALIDUS
  Company Number: US-VALIDUS PHARMACEUTICALS LLC-US-VDP-2023-019055

PATIENT

DRUGS (1)
  1. LOPRESSOR [Suspect]
     Active Substance: METOPROLOL TARTRATE
     Indication: Product used for unknown indication
     Dosage: UNK
     Route: 065
     Dates: start: 20231210

REACTIONS (3)
  - Chest discomfort [Unknown]
  - Muscle tightness [Unknown]
  - Hypopnoea [Unknown]

NARRATIVE: CASE EVENT DATE: 20231210
